FAERS Safety Report 16951818 (Version 6)
Quarter: 2020Q1

REPORT INFORMATION
  Report Type: Spontaneous
  Country: US (occurrence: US)
  Receive Date: 20191023
  Receipt Date: 20200124
  Transmission Date: 20200409
  Serious: No
  Sender: FDA-Public Use
  Company Number: US-PFIZER INC-2019459056

PATIENT
  Age: 10 Year
  Sex: Male
  Weight: 31.75 kg

DRUGS (3)
  1. GENOTROPIN MQ [Suspect]
     Active Substance: SOMATROPIN
     Dosage: 1 MG, DAILY
     Dates: start: 20121104
  2. GENOTROPIN MQ [Suspect]
     Active Substance: SOMATROPIN
     Indication: BODY HEIGHT BELOW NORMAL
     Dosage: 0.8 MG, ALTERNATE DAY
     Dates: start: 2012
  3. GENOTROPIN MQ [Suspect]
     Active Substance: SOMATROPIN
     Indication: GROWTH HORMONE DEFICIENCY
     Dosage: 1 MG, ALTERNATE DAY
     Dates: start: 2012

REACTIONS (7)
  - Irregular sleep wake rhythm disorder [Unknown]
  - Sleep disorder [Unknown]
  - Intentional product misuse [Unknown]
  - Headache [Unknown]
  - Abnormal behaviour [Unknown]
  - Abdominal pain upper [Unknown]
  - Nightmare [Unknown]
